FAERS Safety Report 6468668-6 (Version None)
Quarter: 2009Q4

REPORT INFORMATION
  Report Type: 
  Country: None (occurrence: None)
  Receive Date: 20091203
  Receipt Date: 20091123
  Transmission Date: 20100525
  Serious: Yes (Other)
  Sender: FDA-Public Use
  Company Number: GB-ROCHE-671117

PATIENT
  Age: 21 Year
  Sex: Male

DRUGS (2)
  1. TAMIFLU [Suspect]
     Route: 048
     Dates: start: 20091120, end: 20091120
  2. GINKGO BILOBA [Concomitant]

REACTIONS (4)
  - MIGRAINE [None]
  - MONOPLEGIA [None]
  - PSYCHOTIC BEHAVIOUR [None]
  - VOMITING [None]
